FAERS Safety Report 8969124 (Version 1)
Quarter: 2012Q4

REPORT INFORMATION
  Report Type: 
  Country: CL (occurrence: CL)
  Receive Date: 20121217
  Receipt Date: 20121217
  Transmission Date: 20130627
  Serious: Yes (Other)
  Sender: FDA-Public Use
  Company Number: CL-ROCHE-1168403

PATIENT
  Sex: Male

DRUGS (3)
  1. AVASTIN [Suspect]
     Indication: PRODUCT USED FOR UNKNOWN INDICATION
     Route: 065
  2. XELODA [Concomitant]
     Route: 065
  3. OXALIPLATIN [Concomitant]

REACTIONS (2)
  - Hypertension [Recovered/Resolved]
  - Myoclonus [Recovered/Resolved]
